FAERS Safety Report 25206932 (Version 1)
Quarter: 2025Q2

REPORT INFORMATION
  Report Type: Spontaneous
  Country: US (occurrence: US)
  Receive Date: 20250417
  Receipt Date: 20250417
  Transmission Date: 20250716
  Serious: No
  Sender: TARO
  Company Number: US-TARO PHARMACEUTICALS USA INC.-2024TAR00437

PATIENT

DRUGS (1)
  1. CICLOPIROX [Suspect]
     Active Substance: CICLOPIROX
     Indication: Seborrhoeic dermatitis
     Route: 061

REACTIONS (2)
  - Drug ineffective [Unknown]
  - Therapeutic response decreased [Unknown]
